FAERS Safety Report 10222542 (Version 2)
Quarter: 2014Q2

REPORT INFORMATION
  Report Type: Spontaneous
  Country: IL (occurrence: IL)
  Receive Date: 20140606
  Receipt Date: 20140606
  Transmission Date: 20141212
  Serious: Yes (Hospitalization)
  Sender: FDA-Public Use
  Company Number: IL-CELGENEUS-082-21880-13124480

PATIENT
  Age: 62 Year
  Sex: Male
  Weight: 81.5 kg

DRUGS (6)
  1. REVLIMID [Suspect]
     Indication: PLASMA CELL MYELOMA
     Dosage: 25 MILLIGRAM
     Route: 048
     Dates: start: 20130410, end: 20131217
  2. REVLIMID [Suspect]
     Dosage: 25 MILLIGRAM
     Route: 048
     Dates: end: 20131224
  3. MLN9708/PLACEBO [Suspect]
     Indication: PLASMA CELL MYELOMA
     Route: 048
     Dates: start: 20130410, end: 20131211
  4. MLN9708/PLACEBO [Suspect]
     Route: 048
     Dates: end: 20131224
  5. DEXAMETHASONE [Suspect]
     Indication: PLASMA CELL MYELOMA
     Route: 048
     Dates: start: 20130410, end: 20131218
  6. DEXAMETHASONE [Suspect]
     Route: 048
     Dates: end: 20131224

REACTIONS (1)
  - Colitis [Recovered/Resolved]
